FAERS Safety Report 5350949-0 (Version None)
Quarter: 2007Q2

REPORT INFORMATION
  Report Type: 
  Country: None (occurrence: None)
  Receive Date: 20070608
  Receipt Date: 20070529
  Transmission Date: 20071010
  Serious: Yes (Hospitalization)
  Sender: FDA-Public Use
  Company Number: FR-JNJFOC-20070502868

PATIENT
  Age: 76 Year
  Sex: Female

DRUGS (9)
  1. OFLOCET [Suspect]
     Indication: URINARY TRACT INFECTION
     Route: 048
  2. KEPPRA [Suspect]
     Indication: TEMPORAL LOBE EPILEPSY
     Route: 048
  3. DIHYDAN [Suspect]
     Indication: TEMPORAL LOBE EPILEPSY
     Route: 048
  4. LEVOTHYROXINE SODIUM [Concomitant]
     Indication: HYPOTHYROIDISM
     Route: 065
  5. URBANYL [Concomitant]
     Indication: TEMPORAL LOBE EPILEPSY
     Route: 048
  6. NORCET [Concomitant]
     Indication: DEPRESSION
     Route: 048
  7. RIVOTRIL [Concomitant]
     Indication: DEPRESSION
     Route: 048
  8. LYSANXIA [Concomitant]
     Indication: DEPRESSION
     Route: 048
  9. THERALENE [Concomitant]
     Indication: DEPRESSION
     Route: 048

REACTIONS (3)
  - INTENTIONAL DRUG MISUSE [None]
  - PYREXIA [None]
  - RASH [None]
